FAERS Safety Report 11910173 (Version 1)
Quarter: 2016Q1

REPORT INFORMATION
  Report Type: Spontaneous
  Country: US (occurrence: US)
  Receive Date: 20160112
  Receipt Date: 20160112
  Transmission Date: 20160526
  Serious: No
  Sender: FDA-Public Use
  Company Number: US-PFIZER INC-2015478363

PATIENT
  Sex: Female

DRUGS (2)
  1. LYRICA [Suspect]
     Active Substance: PREGABALIN
     Indication: SYSTEMIC LUPUS ERYTHEMATOSUS
     Dosage: 75 MG
  2. LYRICA [Suspect]
     Active Substance: PREGABALIN
     Indication: FIBROMYALGIA
     Dosage: 50 MG

REACTIONS (7)
  - Weight increased [Unknown]
  - Dry mouth [Unknown]
  - Dizziness [Unknown]
  - Insomnia [Unknown]
  - Peripheral swelling [Unknown]
  - Vision blurred [Unknown]
  - Disturbance in attention [Unknown]
